FAERS Safety Report 5788387-9 (Version None)
Quarter: 2008Q2

REPORT INFORMATION
  Report Type: 
  Country: None (occurrence: None)
  Receive Date: 20080625
  Receipt Date: 20080617
  Transmission Date: 20081010
  Serious: Yes (Other)
  Sender: FDA-Public Use
  Company Number: US-PFIZER INC-2008050991

PATIENT
  Sex: Male
  Weight: 81 kg

DRUGS (8)
  1. SOLU-CORTEF [Suspect]
     Indication: PROPHYLAXIS
     Dates: start: 20080612, end: 20080612
  2. BENADRYL [Suspect]
     Indication: PROPHYLAXIS
     Route: 042
     Dates: start: 20080612, end: 20080612
  3. ASPIRIN [Concomitant]
  4. TOPROL-XL [Concomitant]
  5. NIFEDIPINE [Concomitant]
  6. PLAVIX [Concomitant]
  7. VYTORIN [Concomitant]
     Dosage: TEXT:10/20 DAILY
  8. DIOVAN HCT [Concomitant]
     Dosage: TEXT:320/25 MG DAILY

REACTIONS (2)
  - INJECTION SITE IRRITATION [None]
  - PAIN [None]
